FAERS Safety Report 8244352-3 (Version None)
Quarter: 2012Q1

REPORT INFORMATION
  Report Type: 
  Country: None (occurrence: None)
  Receive Date: 20120329
  Receipt Date: 20120326
  Transmission Date: 20120608
  Serious: Yes (Other)
  Sender: FDA-Public Use
  Company Number: KR-PFIZER INC-2012077402

PATIENT
  Sex: Female

DRUGS (2)
  1. LYRICA [Suspect]
     Dosage: 150 MG, 2X/DAY
     Route: 048
  2. LYRICA [Suspect]
     Indication: PAIN
     Dosage: 75 MG, 2X/DAY
     Route: 048

REACTIONS (11)
  - VISUAL IMPAIRMENT [None]
  - COLD SWEAT [None]
  - PAIN [None]
  - SWELLING [None]
  - FEELING ABNORMAL [None]
  - ANXIETY [None]
  - CHEST DISCOMFORT [None]
  - WEIGHT INCREASED [None]
  - OCULAR DISCOMFORT [None]
  - ASTHENIA [None]
  - WITHDRAWAL SYNDROME [None]
